FAERS Safety Report 7385611-6 (Version None)
Quarter: 2011Q1

REPORT INFORMATION
  Report Type: 
  Country: None (occurrence: None)
  Receive Date: 20110331
  Receipt Date: 20110324
  Transmission Date: 20110831
  Serious: No
  Sender: FDA-Public Use
  Company Number: US-BIOGENIDEC-2011BI011299

PATIENT
  Age: 28 Year
  Sex: Female

DRUGS (1)
  1. TYSABRI [Suspect]
     Indication: MULTIPLE SCLEROSIS
     Route: 042
     Dates: start: 20100601

REACTIONS (6)
  - MULTIPLE SCLEROSIS RELAPSE [None]
  - PYREXIA [None]
  - POLLAKIURIA [None]
  - SINUSITIS [None]
  - HEADACHE [None]
  - URINARY TRACT INFECTION [None]
